FAERS Safety Report 9115408 (Version 6)
Quarter: 2016Q4

REPORT INFORMATION
  Report Type: Spontaneous
  Country: US (occurrence: US)
  Receive Date: 20130225
  Receipt Date: 20161212
  Transmission Date: 20170207
  Serious: Yes (Death, Other)
  Sender: FDA-Public Use
  Company Number: US-PFIZER INC-2013065738

PATIENT
  Age: 46 Year
  Sex: Female
  Weight: 84.35 kg

DRUGS (4)
  1. DILANTIN [Suspect]
     Active Substance: PHENYTOIN
     Dosage: 200 MG, 2X/DAY
     Route: 048
  2. DEPAKOTE [Suspect]
     Active Substance: DIVALPROEX SODIUM
     Indication: SEIZURE
     Dosage: 500 MG, 2X/DAY
  3. DILANTIN [Suspect]
     Active Substance: PHENYTOIN
     Indication: SEIZURE
     Dosage: 200 MG IN MORNING AND 230 MG AT NIGHT
     Route: 048
  4. TYLENOL [Concomitant]
     Active Substance: ACETAMINOPHEN
     Indication: PAIN
     Dosage: 500 MG, 1X/DAY

REACTIONS (15)
  - Coronary artery disease [Unknown]
  - Tremor [Unknown]
  - Reynold^s syndrome [Unknown]
  - Lymphoedema [Unknown]
  - Osteopenia [Unknown]
  - Drug prescribing error [Unknown]
  - Disease recurrence [Unknown]
  - Cardiac disorder [Unknown]
  - Phlebitis [Unknown]
  - Systemic lupus erythematosus [Fatal]
  - End stage renal disease [Fatal]
  - Pneumonia [Unknown]
  - Anticonvulsant drug level decreased [Unknown]
  - Thrombosis [Unknown]
  - Fibromyalgia [Unknown]

NARRATIVE: CASE EVENT DATE: 2005
